FAERS Safety Report 20919645 (Version 1)
Quarter: 2022Q2

REPORT INFORMATION
  Report Type: Spontaneous
  Country: US (occurrence: None)
  Receive Date: 20220603
  Receipt Date: 20220603
  Transmission Date: 20220721
  Serious: No
  Sender: FDA-Public Use
  Company Number: None

PATIENT
  Sex: Female

DRUGS (1)
  1. NORDITROPIN [Suspect]
     Active Substance: SOMATROPIN
     Dosage: FREQUENCY : DAILY;?
     Route: 058
     Dates: start: 20220526

REACTIONS (6)
  - Incorrect dose administered by device [None]
  - Wrong technique in product usage process [None]
  - Thirst [None]
  - Anger [None]
  - Patient dissatisfaction with device [None]
  - Device use confusion [None]
